FAERS Safety Report 5165049-2 (Version None)
Quarter: 2006Q4

REPORT INFORMATION
  Report Type: 
  Country: None (occurrence: None)
  Receive Date: 20061124
  Receipt Date: 20061114
  Transmission Date: 20070319
  Serious: Yes (Death, Life-Threatening)
  Sender: FDA-Public Use
  Company Number: 2006097135

PATIENT
  Age: 77 Year
  Sex: Female

DRUGS (1)
  1. ZYVOX [Suspect]
     Indication: STAPHYLOCOCCAL INFECTION
     Dosage: 1200 MG ORAL
     Route: 048
     Dates: start: 20060718, end: 20060731

REACTIONS (1)
  - PLATELET COUNT DECREASED [None]
